FAERS Safety Report 6035170-5 (Version None)
Quarter: 2009Q1

REPORT INFORMATION
  Report Type: 
  Country: None (occurrence: None)
  Receive Date: 20090112
  Receipt Date: 20090112
  Transmission Date: 20090719
  Serious: Yes (Death)
  Sender: FDA-Public Use
  Company Number: GR-ABBOTT-08P-066-0493721-00

PATIENT
  Sex: Female
  Weight: 69 kg

DRUGS (13)
  1. ZEMPLAR [Suspect]
     Indication: HYPERPARATHYROIDISM SECONDARY
     Route: 042
     Dates: start: 20070522
  2. LASIX [Concomitant]
     Indication: DIURETIC THERAPY
     Dosage: FORM: 500 MILLIGRAMS
     Route: 048
  3. CALCIORAL [Concomitant]
     Indication: BLOOD PHOSPHORUS ABNORMAL
     Route: 048
  4. RENAGEL [Concomitant]
     Indication: BLOOD PHOSPHORUS ABNORMAL
     Dosage: FORM: 800
     Route: 048
  5. NITRONG [Concomitant]
     Indication: ANGINA PECTORIS
     Dosage: FORM: 5 MILLIGRAMS
     Route: 048
  6. PLAVIX [Concomitant]
     Indication: CORONARY ARTERY DISEASE
     Dosage: FORM: 75
     Route: 048
  7. DILATREND [Concomitant]
     Indication: HYPERTENSION
     Dosage: FORM: 6.25
     Route: 048
  8. COVERSIL [Concomitant]
     Indication: HYPERTENSION
     Dosage: FORM: 5 MILLIGRAMS
     Route: 048
  9. SALOSPIR [Concomitant]
     Indication: CORONARY ARTERY DISEASE
     Dosage: FORM: 100 MILLIGRAMS
     Route: 048
  10. NEUROBION [Concomitant]
     Indication: VITAMIN SUPPLEMENTATION
  11. SUPERAMINE [Concomitant]
     Indication: VITAMIN SUPPLEMENTATION
  12. BIOTIN [Concomitant]
     Indication: DRUG USE FOR UNKNOWN INDICATION
  13. FEROFOLIC [Concomitant]
     Indication: MINERAL SUPPLEMENTATION

REACTIONS (1)
  - CARDIAC ARREST [None]
